FAERS Safety Report 15978009 (Version 1)
Quarter: 2019Q1

REPORT INFORMATION
  Report Type: Spontaneous
  Country: US (occurrence: US)
  Receive Date: 20190218
  Receipt Date: 20190218
  Transmission Date: 20190418
  Serious: No
  Sender: FDA-Public Use
  Company Number: US-SA-2019SA041506

PATIENT
  Age: 72 Year
  Sex: Female

DRUGS (1)
  1. LANTUS [Suspect]
     Active Substance: INSULIN GLARGINE
     Indication: TYPE 2 DIABETES MELLITUS
     Dosage: 50 UNITS OF INSULIN A DAY, 25 UNITS IN THE MORNING AND 25 UNITS AT NIGHT
     Route: 065
     Dates: start: 2015

REACTIONS (1)
  - Inappropriate schedule of product administration [Unknown]
